FAERS Safety Report 6959481 (Version 3)
Quarter: 2013Q3

REPORT INFORMATION
  Report Type: Spontaneous
  Country: US (occurrence: CA)
  Receive Date: 20090402
  Receipt Date: 20130719
  Transmission Date: 20140515
  Serious: No
  Sender: FDA-Public Use
  Company Number: CA-B.I. PHARMACEUTICALS,INC./RIDGEFIELD-2009-BP-04067BP

PATIENT
  Sex: Male

DRUGS (1)
  1. MIRAPEX [Suspect]
     Indication: PARKINSON^S DISEASE
     Dates: start: 20011003, end: 200509

REACTIONS (2)
  - Pathological gambling [Recovered/Resolved]
  - Hypersexuality [Unknown]
